FAERS Safety Report 9657398 (Version 1)
Quarter: 2013Q4

REPORT INFORMATION
  Report Type: Spontaneous
  Country: US (occurrence: US)
  Receive Date: 20131030
  Receipt Date: 20131030
  Transmission Date: 20140711
  Serious: Yes (Other)
  Sender: FDA-Public Use
  Company Number: US-SA-2013SA110659

PATIENT
  Age: 76 Year
  Sex: Female
  Weight: 71.21 kg

DRUGS (1)
  1. DEMEROL [Suspect]
     Route: 065

REACTIONS (2)
  - Myocardial infarction [Unknown]
  - Blood pressure decreased [Unknown]
